FAERS Safety Report 6143226-1 (Version None)
Quarter: 2009Q2

REPORT INFORMATION
  Report Type: 
  Country: None (occurrence: None)
  Receive Date: 20090403
  Receipt Date: 20090330
  Transmission Date: 20091009
  Serious: Yes (Life-Threatening, Hospitalization)
  Sender: FDA-Public Use
  Company Number: CH-BAYER-200916161GPV

PATIENT
  Age: 76 Year
  Sex: Female

DRUGS (1)
  1. ULTRAVIST 370 [Suspect]
     Indication: COMPUTERISED TOMOGRAM ABDOMEN
     Route: 042
     Dates: start: 20090223

REACTIONS (5)
  - CARDIAC ARREST [None]
  - DYSPNOEA [None]
  - FOAMING AT MOUTH [None]
  - SPEECH DISORDER [None]
  - TREMOR [None]
